FAERS Safety Report 11020352 (Version 1)
Quarter: 2015Q2

REPORT INFORMATION
  Report Type: Spontaneous
  Country: US (occurrence: US)
  Receive Date: 20150413
  Receipt Date: 20150413
  Transmission Date: 20150821
  Serious: Yes (Hospitalization)
  Sender: FDA-Public Use
  Company Number: US-CIPLA LTD.-2015US02855

PATIENT

DRUGS (4)
  1. GEMCITABINE [Suspect]
     Active Substance: GEMCITABINE\GEMCITABINE HYDROCHLORIDE
     Indication: ADENOCARCINOMA PANCREAS
     Dosage: TWO 4-WEEK COURSES, 1000 MG/M2 ADMINISTERED WEEKLY TIMES 3 FOLLOWED BY A 1-WEEK BREAK
  2. 5-FLUOROURACIL [Suspect]
     Active Substance: FLUOROURACIL
     Indication: ADENOCARCINOMA PANCREAS
     Dosage: 175 MG/M2 BY OUTPATIENT PUMP 7 DAYS A WEEK FOR 6 WEEKS
  3. CISPLATIN. [Suspect]
     Active Substance: CISPLATIN
     Indication: ADENOCARCINOMA PANCREAS
     Dosage: 25 MG/M2 WEEKLY FOR 6 WEEKS
     Route: 040
  4. INTERFERON-ALPHA [Suspect]
     Active Substance: INTERFERON ALFA-2A OR INTERFERON ALFA-2B
     Indication: ADENOCARCINOMA PANCREAS
     Dosage: 3 MILLION UNITS 3 TIMES PER WEEK FOR 6 WEEKS
     Route: 058

REACTIONS (1)
  - Clostridium difficile colitis [Unknown]
